FAERS Safety Report 10232670 (Version 1)
Quarter: 2014Q2

REPORT INFORMATION
  Report Type: Spontaneous
  Country: US (occurrence: None)
  Receive Date: 20140610
  Receipt Date: 20140610
  Transmission Date: 20141212
  Serious: Yes (Other)
  Sender: FDA-Public Use
  Company Number: 2014COV00004

PATIENT
  Age: 60 Year
  Sex: Female
  Weight: 113.4 kg

DRUGS (10)
  1. PLAQUENIL TABLET (HYDROXYCHLOROQUINE) TABLET [Suspect]
     Indication: RHEUMATOID ARTHRITIS
     Dates: start: 2002, end: 201404
  2. HUMIRA (ADALIMUMAB) (SOLUTION FOR INJECTION) [Suspect]
     Indication: RHEUMATOID ARTHRITIS
     Dates: start: 2012, end: 2013
  3. METHOTREXATE [Concomitant]
  4. BENICAR [Concomitant]
  5. FOLATE (FOLIC ACID) [Concomitant]
  6. VITAMIN C [Concomitant]
  7. FISH OIL [Concomitant]
  8. ALIVE MULTIVITAMIN [Concomitant]
  9. PREMARIN [Concomitant]
  10. NORVASC [Concomitant]

REACTIONS (2)
  - Ocular toxicity [None]
  - Blindness unilateral [None]
